FAERS Safety Report 4828018-5 (Version None)
Quarter: 2005Q4

REPORT INFORMATION
  Report Type: 
  Country: None (occurrence: None)
  Receive Date: 20051115
  Receipt Date: 20051104
  Transmission Date: 20060501
  Serious: Yes (Other)
  Sender: FDA-Public Use
  Company Number: FR-BRISTOL-MYERS SQUIBB COMPANY-13168067

PATIENT
  Age: 70 Year
  Sex: Male

DRUGS (2)
  1. CAPTOPRIL [Suspect]
     Route: 048
  2. SECTRAL [Concomitant]
     Route: 048

REACTIONS (1)
  - KAPOSI'S SARCOMA [None]
